FAERS Safety Report 7183267-9 (Version None)
Quarter: 2010Q4

REPORT INFORMATION
  Report Type: 
  Country: None (occurrence: None)
  Receive Date: 20101222
  Receipt Date: 20100712
  Transmission Date: 20110411
  Serious: No
  Sender: FDA-Public Use
  Company Number: A0861216A

PATIENT
  Age: 58 Year
  Sex: Female
  Weight: 78.2 kg

DRUGS (10)
  1. FLUTICASONE PROPIONATE [Suspect]
     Dosage: 2SPR PER DAY
     Route: 045
     Dates: start: 20100429, end: 20100501
  2. NASACORT [Suspect]
  3. OXYGEN [Concomitant]
  4. CLARITIN [Concomitant]
  5. SUDAFED 12 HOUR [Concomitant]
  6. SINGULAIR [Concomitant]
  7. SALT WATER [Concomitant]
  8. LEVAQUIN [Concomitant]
  9. FLONASE [Concomitant]
  10. OMNARIS [Concomitant]

REACTIONS (8)
  - CHRONIC SINUSITIS [None]
  - COMPUTERISED TOMOGRAM [None]
  - HYPERSENSITIVITY [None]
  - NASAL CONGESTION [None]
  - NASAL DISORDER [None]
  - NASAL OEDEMA [None]
  - RHINITIS [None]
  - SINUSITIS [None]
